FAERS Safety Report 8884479 (Version 1)
Quarter: 2012Q4

REPORT INFORMATION
  Report Type: 
  Country: BR (occurrence: BR)
  Receive Date: 20121102
  Receipt Date: 20121102
  Transmission Date: 20130627
  Serious: Yes (Other)
  Sender: FDA-Public Use
  Company Number: PHHY2012BR097371

PATIENT
  Sex: Female
  Weight: 75 kg

DRUGS (8)
  1. TEGRETOL [Suspect]
     Indication: EPILEPSY
     Dosage: 10 ml, daily
     Dates: end: 20121024
  2. TEGRETOL [Suspect]
     Dosage: UNK UKN, UNK
  3. HIDANTAL [Concomitant]
     Indication: EPILEPSY
     Dosage: 0.5 DF, TID
  4. AIRES [Concomitant]
  5. CEWIN [Concomitant]
  6. B COMPLEX [Concomitant]
     Dosage: UNK UKN, BID
  7. DIGESAN [Concomitant]
     Dosage: UNK UKN, BID
  8. PANTOPRAZOLE SANDOZ [Concomitant]
     Dosage: 2 DF, daily

REACTIONS (6)
  - Pneumonia [Unknown]
  - Pneumonia aspiration [Recovering/Resolving]
  - Urinary tract infection [Recovered/Resolved]
  - Secretion discharge [Recovered/Resolved]
  - Osteoporosis [Not Recovered/Not Resolved]
  - Hyperhidrosis [Unknown]
